FAERS Safety Report 9894977 (Version 2)
Quarter: 2014Q1

REPORT INFORMATION
  Report Type: Spontaneous
  Country: US (occurrence: US)
  Receive Date: 20140213
  Receipt Date: 20140213
  Transmission Date: 20141002
  Serious: No
  Sender: FDA-Public Use
  Company Number: US-BRISTOL-MYERS SQUIBB COMPANY-17259284

PATIENT
  Age: 59 Year
  Sex: Female
  Weight: 49 kg

DRUGS (3)
  1. ORENCIA [Suspect]
     Indication: SCLERODERMA
     Dosage: LAST DOSE ON JAN13
     Route: 042
     Dates: start: 201207
  2. METHOTREXATE [Concomitant]
     Dosage: PILLS
  3. PREDNISONE [Concomitant]

REACTIONS (5)
  - Respiratory tract infection [Unknown]
  - Vomiting [Unknown]
  - Drug ineffective [Unknown]
  - Chest pain [Unknown]
  - Cough [Unknown]
